FAERS Safety Report 10071928 (Version 1)
Quarter: 2014Q2

REPORT INFORMATION
  Report Type: Report from Study
  Country: CL (occurrence: CL)
  Receive Date: 20140411
  Receipt Date: 20140411
  Transmission Date: 20141212
  Serious: Yes (Other)
  Sender: FDA-Public Use
  Company Number: CL-ROCHE-1380430

PATIENT
  Age: 36 Year
  Sex: Male
  Weight: 110 kg

DRUGS (1)
  1. XELODA [Suspect]
     Indication: COLON CANCER
     Dosage: 14 DAYS PER CYCLE
     Route: 048
     Dates: start: 20140304

REACTIONS (2)
  - Musculoskeletal pain [Recovered/Resolved]
  - Hypoaesthesia [Not Recovered/Not Resolved]
